FAERS Safety Report 4356078-7 (Version None)
Quarter: 2004Q2

REPORT INFORMATION
  Report Type: 
  Country: None (occurrence: None)
  Receive Date: 20040507
  Receipt Date: 20040507
  Transmission Date: 20050107
  Serious: Yes (Hospitalization)
  Sender: FDA-Public Use
  Company Number: None

PATIENT
  Age: 85 Year
  Sex: Male
  Weight: 54.4 kg

DRUGS (1)
  1. MORPHINE [Suspect]

REACTIONS (3)
  - MENTAL STATUS CHANGES [None]
  - RASH [None]
  - SOMNOLENCE [None]
